FAERS Safety Report 17238870 (Version 20)
Quarter: 2021Q3

REPORT INFORMATION
  Report Type: Spontaneous
  Country: US (occurrence: US)
  Receive Date: 20200106
  Receipt Date: 20210812
  Transmission Date: 20211014
  Serious: Yes (Hospitalization, Other)
  Sender: FDA-Public Use
  Company Number: US-SA-2020SA001996

PATIENT
  Age: 32 Year
  Sex: Male
  Weight: 91.2 kg

DRUGS (6)
  1. CABLIVI [Suspect]
     Active Substance: CAPLACIZUMAB-YHDP
     Dosage: 11 MG, QD
     Route: 058
     Dates: start: 20191224
  2. CABLIVI [Suspect]
     Active Substance: CAPLACIZUMAB-YHDP
     Dosage: 11 MG, QD
     Route: 058
     Dates: start: 20200415
  3. CELLCEPT [Suspect]
     Active Substance: MYCOPHENOLATE MOFETIL\MYCOPHENOLATE MOFETIL HYDROCHLORIDE
     Dosage: UNK UNK, UNK
     Route: 065
  4. ZOFRAN [Suspect]
     Active Substance: ONDANSETRON HYDROCHLORIDE
  5. LIPITOR [Concomitant]
     Active Substance: ATORVASTATIN CALCIUM
     Indication: BLOOD CHOLESTEROL ABNORMAL
     Dosage: UNK UNK, UNK
     Route: 065
  6. CABLIVI [Suspect]
     Active Substance: CAPLACIZUMAB-YHDP
     Indication: THROMBOTIC MICROANGIOPATHY
     Dosage: 11 MG, QD
     Route: 058
     Dates: start: 20190124

REACTIONS (21)
  - Diarrhoea [Unknown]
  - Blood lactate dehydrogenase increased [Unknown]
  - Blindness [Unknown]
  - Deafness [Unknown]
  - Injection site extravasation [Unknown]
  - Intentional dose omission [Unknown]
  - Vomiting [Unknown]
  - Decreased appetite [Unknown]
  - ADAMTS13 activity decreased [Unknown]
  - Hospitalisation [Unknown]
  - Oral blood blister [Unknown]
  - Contusion [Unknown]
  - Incorrect dose administered [Unknown]
  - Anxiety [Unknown]
  - Gingival bleeding [Recovered/Resolved]
  - Epistaxis [Unknown]
  - Nausea [Unknown]
  - Platelet count increased [Unknown]
  - Skin haemorrhage [Unknown]
  - Blood pressure abnormal [Recovering/Resolving]
  - Back pain [Recovered/Resolved]

NARRATIVE: CASE EVENT DATE: 201911
